FAERS Safety Report 7399354-6 (Version None)
Quarter: 2011Q2

REPORT INFORMATION
  Report Type: 
  Country: None (occurrence: None)
  Receive Date: 20110407
  Receipt Date: 20110329
  Transmission Date: 20111010
  Serious: Yes (Hospitalization, Other)
  Sender: FDA-Public Use
  Company Number: US-MYLANLABS-2011S1006508

PATIENT
  Age: 72 Year
  Sex: Female

DRUGS (1)
  1. DILTIAZEM HCL [Suspect]
     Indication: BLOOD PRESSURE
     Route: 048
     Dates: start: 20110307, end: 20110310

REACTIONS (6)
  - FEELING ABNORMAL [None]
  - DRUG DISPENSING ERROR [None]
  - ABNORMAL DREAMS [None]
  - HALLUCINATION, VISUAL [None]
  - OVERDOSE [None]
  - BLOOD PRESSURE INCREASED [None]
